FAERS Safety Report 10269814 (Version 1)
Quarter: 2014Q2

REPORT INFORMATION
  Report Type: Spontaneous
  Country: US (occurrence: None)
  Receive Date: 20140625
  Receipt Date: 20140625
  Transmission Date: 20141212
  Serious: Yes (Hospitalization)
  Sender: FDA-Public Use
  Company Number: 2397565

PATIENT
  Age: 37 Year
  Sex: Female

DRUGS (2)
  1. EPINEPHRINE [Suspect]
     Indication: KOUNIS SYNDROME
     Dosage: NOT OTHERWISE SPECIFIED
     Route: 042
  2. VASOPRESSIN [Concomitant]

REACTIONS (1)
  - Stress cardiomyopathy [None]
